FAERS Safety Report 4824676-X (Version None)
Quarter: 2005Q4

REPORT INFORMATION
  Report Type: 
  Country: None (occurrence: None)
  Receive Date: 20051012
  Receipt Date: 20050810
  Transmission Date: 20060501
  Serious: No
  Sender: FDA-Public Use
  Company Number: 2005S1000177

PATIENT
  Age: 44 Year

DRUGS (1)
  1. CUBICIN [Suspect]
     Indication: OSTEOMYELITIS
     Dosage: 340 MG; Q24H; IV
     Route: 042
     Dates: start: 20050725

REACTIONS (1)
  - INJECTION SITE REACTION [None]
